FAERS Safety Report 24896399 (Version 1)
Quarter: 2025Q1

REPORT INFORMATION
  Report Type: Spontaneous
  Country: DK (occurrence: DK)
  Receive Date: 20250128
  Receipt Date: 20250128
  Transmission Date: 20250408
  Serious: Yes (Death, Hospitalization, Other)
  Sender: TEVA
  Company Number: None

PATIENT
  Age: 78 Year
  Sex: Male
  Weight: 81.5 kg

DRUGS (5)
  1. METHOTREXATE [Suspect]
     Active Substance: METHOTREXATE
     Indication: Rheumatoid arthritis
     Route: 048
     Dates: start: 20130913, end: 20241129
  2. LIPISTAD [Concomitant]
     Indication: Hypercholesterolaemia
     Route: 048
     Dates: start: 20241104
  3. FOLIC ACID [Concomitant]
     Active Substance: FOLIC ACID
     Indication: Vitamin supplementation
     Route: 065
     Dates: start: 20220127
  4. LOSARTAN POTASSIUM [Concomitant]
     Active Substance: LOSARTAN POTASSIUM
     Indication: Hypertension
     Route: 048
     Dates: start: 20241105
  5. Furix [Concomitant]
     Indication: Diuretic therapy
     Route: 048
     Dates: start: 20241105, end: 20241129

REACTIONS (6)
  - Pancytopenia [Fatal]
  - Rash [Unknown]
  - Epistaxis [Unknown]
  - Infection [Unknown]
  - Toxicity to various agents [Fatal]
  - Acute kidney injury [Fatal]

NARRATIVE: CASE EVENT DATE: 20241128
